FAERS Safety Report 12811511 (Version 1)
Quarter: 2016Q4

REPORT INFORMATION
  Report Type: Spontaneous
  Country: US (occurrence: US)
  Receive Date: 20161005
  Receipt Date: 20161005
  Transmission Date: 20170207
  Serious: No
  Sender: FDA-Public Use
  Company Number: US-AMGEN-USASP2016097270

PATIENT
  Age: 70 Year
  Sex: Female

DRUGS (1)
  1. PROLIA [Suspect]
     Active Substance: DENOSUMAB
     Indication: OSTEOPOROSIS POSTMENOPAUSAL
     Dosage: 60 MG, UNK
     Route: 065
     Dates: start: 20160603

REACTIONS (12)
  - Pain in jaw [Unknown]
  - Back pain [Unknown]
  - Bone pain [Unknown]
  - Eye pain [Unknown]
  - Anxiety [Unknown]
  - Headache [Unknown]
  - Ear pain [Unknown]
  - Malaise [Unknown]
  - Aphthous ulcer [Not Recovered/Not Resolved]
  - Weight abnormal [Unknown]
  - Oropharyngeal pain [Unknown]
  - Pyrexia [Unknown]
